FAERS Safety Report 21477235 (Version 1)
Quarter: 2022Q4

REPORT INFORMATION
  Report Type: Spontaneous
  Country: US (occurrence: None)
  Receive Date: 20221018
  Receipt Date: 20221018
  Transmission Date: 20230113
  Serious: No
  Sender: FDA-Public Use
  Company Number: None

PATIENT
  Sex: Female

DRUGS (1)
  1. TYKERB [Suspect]
     Active Substance: LAPATINIB DITOSYLATE
     Dosage: FREQUENCY : DAILY;?
     Route: 048

REACTIONS (5)
  - Brain operation [None]
  - Breast operation [None]
  - Therapy interrupted [None]
  - Seizure [None]
  - Unresponsive to stimuli [None]
